FAERS Safety Report 8890246 (Version 2)
Quarter: 2013Q1

REPORT INFORMATION
  Report Type: Spontaneous
  Country: DE (occurrence: None)
  Receive Date: 20121031
  Receipt Date: 20121120
  Transmission Date: 20140127
  Serious: Yes (Hospitalization, Other)
  Sender: FDA-Public Use
  Company Number: TPG2012A01702

PATIENT
  Sex: Male

DRUGS (2)
  1. EDARBI [Suspect]
     Indication: HYPERTENSION
     Dosage: 40 MG (40 MG,1 IN 1 D)  ORAL
     Route: 048
     Dates: start: 20120203
  2. DICLOFENAC (DICLOFENAC) [Concomitant]

REACTIONS (6)
  - Circulatory collapse [None]
  - Dyspnoea exertional [None]
  - Hypertensive heart disease [None]
  - Dizziness [None]
  - Presyncope [None]
  - Aortic valve stenosis [None]
